FAERS Safety Report 5670106-8 (Version None)
Quarter: 2008Q1

REPORT INFORMATION
  Report Type: 
  Country: None (occurrence: None)
  Receive Date: 20080312
  Receipt Date: 20080302
  Transmission Date: 20080703
  Serious: Yes (Death, Life-Threatening, Hospitalization)
  Sender: FDA-Public Use
  Company Number: 20084821

PATIENT
  Age: 67 Year

DRUGS (1)
  1. LIORESAL [Suspect]
     Indication: MUSCLE SPASTICITY
     Dosage: VARIOUS MCG, DAILY, INTRATHECAL
     Route: 037
     Dates: start: 20050101

REACTIONS (3)
  - CATHETER RELATED COMPLICATION [None]
  - MENINGITIS BACTERIAL [None]
  - VENTRICULAR FIBRILLATION [None]
